FAERS Safety Report 5293284-1 (Version None)
Quarter: 2007Q2

REPORT INFORMATION
  Report Type: 
  Country: None (occurrence: None)
  Receive Date: 20070411
  Receipt Date: 20070330
  Transmission Date: 20071010
  Serious: Yes (Hospitalization, Other)
  Sender: FDA-Public Use
  Company Number: US-ELI_LILLY_AND_COMPANY-US200701001335

PATIENT
  Age: 71 Year
  Sex: Female

DRUGS (1)
  1. FORTEO [Suspect]
     Indication: OSTEOPOROSIS
     Dosage: 20 UG, DAILY (1/D)
     Route: 058
     Dates: start: 20060601

REACTIONS (25)
  - AMNESIA [None]
  - ANXIETY [None]
  - ARTHRALGIA [None]
  - ASPARTATE AMINOTRANSFERASE INCREASED [None]
  - BACK PAIN [None]
  - CEREBROVASCULAR ACCIDENT [None]
  - CONFUSIONAL STATE [None]
  - DECREASED ACTIVITY [None]
  - FEELING ABNORMAL [None]
  - HAEMORRHAGE [None]
  - HEADACHE [None]
  - HYPOAESTHESIA [None]
  - HYPOTENSION [None]
  - LABORATORY TEST ABNORMAL [None]
  - MUSCLE SPASMS [None]
  - MUSCULOSKELETAL STIFFNESS [None]
  - NECK PAIN [None]
  - NERVE INJURY [None]
  - NUCLEAR MAGNETIC RESONANCE IMAGING ABNORMAL [None]
  - RESORPTION BONE INCREASED [None]
  - SINUS CONGESTION [None]
  - SINUS DISORDER [None]
  - SYNOVIAL CYST [None]
  - TOOTH DISORDER [None]
  - TRANSIENT ISCHAEMIC ATTACK [None]
